FAERS Safety Report 10147153 (Version 1)
Quarter: 2014Q2

REPORT INFORMATION
  Report Type: Spontaneous
  Country: US (occurrence: US)
  Receive Date: 20140501
  Receipt Date: 20140501
  Transmission Date: 20141212
  Serious: Yes (Death, Other)
  Sender: FDA-Public Use
  Company Number: US-BAXTER-2014BAX020872

PATIENT
  Age: 14 Month
  Sex: Female

DRUGS (7)
  1. GAMMAGARD LIQUID [Suspect]
     Indication: EPSTEIN-BARR VIRUS ASSOCIATED LYMPHOMA
     Route: 042
  2. GAMMAGARD LIQUID [Suspect]
     Indication: DIFFUSE LARGE B-CELL LYMPHOMA
  3. GAMMAGARD LIQUID [Suspect]
     Indication: OFF LABEL USE
  4. ACYCLOVIR [Suspect]
     Indication: EPSTEIN-BARR VIRUS ASSOCIATED LYMPHOMA
     Route: 065
  5. ACYCLOVIR [Suspect]
     Indication: DIFFUSE LARGE B-CELL LYMPHOMA
  6. RITUXIMAB [Suspect]
     Indication: EPSTEIN-BARR VIRUS ASSOCIATED LYMPHOMA
     Route: 065
  7. RITUXIMAB [Suspect]
     Indication: DIFFUSE LARGE B-CELL LYMPHOMA

REACTIONS (3)
  - Respiratory failure [Fatal]
  - Drug ineffective [Not Recovered/Not Resolved]
  - Gastrointestinal haemorrhage [Unknown]
